FAERS Safety Report 14896885 (Version 3)
Quarter: 2018Q3

REPORT INFORMATION
  Report Type: Spontaneous
  Country: FR (occurrence: FR)
  Receive Date: 20180515
  Receipt Date: 20180827
  Transmission Date: 20181010
  Serious: Yes (Other)
  Sender: FDA-Public Use
  Company Number: FR-MYLANLABS-2018M1002819

PATIENT
  Age: 58 Year
  Sex: Female
  Weight: 95 kg

DRUGS (10)
  1. PANTOPRAZOLE [Suspect]
     Active Substance: PANTOPRAZOLE
     Indication: PRODUCT USED FOR UNKNOWN INDICATION
     Dosage: 20 MG, QD
     Route: 048
     Dates: end: 20171204
  2. MYTELASE [Suspect]
     Active Substance: AMBENONIUM CHLORIDE
     Dosage: 1 DF, Q6H
     Route: 048
     Dates: start: 201605
  3. STAGID [Suspect]
     Active Substance: METFORMIN PAMOATE
     Indication: TYPE 2 DIABETES MELLITUS
     Dosage: 3 DF, QD
     Route: 048
     Dates: end: 20171204
  4. MYTELASE [Suspect]
     Active Substance: AMBENONIUM CHLORIDE
     Dosage: 4 DF, QD
     Dates: start: 201605
  5. CANDESARTAN. [Suspect]
     Active Substance: CANDESARTAN
     Indication: HYPERTENSION
     Dosage: 4 MG, QD
     Route: 048
     Dates: end: 20171208
  6. LEVOTHYROX [Suspect]
     Active Substance: LEVOTHYROXINE
     Indication: AUTOIMMUNE THYROIDITIS
     Dosage: 1 DF, QD
     Route: 048
     Dates: start: 20170501, end: 20171001
  7. MYTELASE [Suspect]
     Active Substance: AMBENONIUM CHLORIDE
     Indication: MYASTHENIA GRAVIS
     Dosage: 1 DF, QID
     Dates: start: 20160501
  8. XYZALL [Suspect]
     Active Substance: LEVOCETIRIZINE DIHYDROCHLORIDE
     Indication: HYPERSENSITIVITY
     Dosage: 1 DF, QD
     Route: 048
     Dates: end: 20171204
  9. XYZALL [Suspect]
     Active Substance: LEVOCETIRIZINE DIHYDROCHLORIDE
     Indication: HYPERSENSITIVITY
     Dosage: 4 MG, QD
     Route: 048
     Dates: end: 20171204
  10. IMUREL                             /00001501/ [Suspect]
     Active Substance: AZATHIOPRINE SODIUM
     Indication: MYASTHENIA GRAVIS
     Dosage: 2 DF, QD
     Route: 048
     Dates: start: 20160901

REACTIONS (1)
  - Diarrhoea [Recovered/Resolved]

NARRATIVE: CASE EVENT DATE: 20161101
